FAERS Safety Report 25982102 (Version 1)
Quarter: 2025Q4

REPORT INFORMATION
  Report Type: Spontaneous
  Country: GB (occurrence: GB)
  Receive Date: 20251031
  Receipt Date: 20251031
  Transmission Date: 20260118
  Serious: Yes (Other)
  Sender: AUROBINDO
  Company Number: GB-MHRA-DEFECT-202509021717103360-JCLDK

PATIENT

DRUGS (1)
  1. METOPROLOL [Suspect]
     Active Substance: METOPROLOL
     Indication: Product used for unknown indication
     Dosage: 100 MILLIGRAM
     Route: 065

REACTIONS (10)
  - Blood pressure decreased [Unknown]
  - Heart rate decreased [Unknown]
  - Syncope [Unknown]
  - Dizziness [Unknown]
  - Dyspnoea [Unknown]
  - Migraine [Unknown]
  - Vomiting [Unknown]
  - Malaise [Unknown]
  - Limb discomfort [Unknown]
  - Pain in extremity [Unknown]
